FAERS Safety Report 23322235 (Version 1)
Quarter: 2023Q4

REPORT INFORMATION
  Report Type: Spontaneous
  Country: US (occurrence: None)
  Receive Date: 20231219
  Receipt Date: 20231219
  Transmission Date: 20240109
  Serious: Yes (Other)
  Sender: FDA-Public Use
  Company Number: None

PATIENT
  Age: 31 Year
  Sex: Male
  Weight: 56.4 kg

DRUGS (1)
  1. SUBLOCADE [Suspect]
     Active Substance: BUPRENORPHINE
     Indication: Drug use disorder
     Dosage: FREQUENCY : MONTHLY;?
     Route: 058
     Dates: start: 20230817, end: 20231115

REACTIONS (3)
  - Product substitution issue [None]
  - Therapeutic product effect incomplete [None]
  - Product formulation issue [None]

NARRATIVE: CASE EVENT DATE: 20231115
